FAERS Safety Report 5957457-4 (Version None)
Quarter: 2008Q4

REPORT INFORMATION
  Report Type: 
  Country: None (occurrence: None)
  Receive Date: 20081114
  Receipt Date: 20081104
  Transmission Date: 20090506
  Serious: Yes (Death, Hospitalization)
  Sender: FDA-Public Use
  Company Number: GXKR2008DE10430

PATIENT
  Sex: Female
  Weight: 92 kg

DRUGS (3)
  1. CEFUROXIME [Suspect]
     Indication: URINARY TRACT INFECTION
     Dosage: INFUSION
     Dates: start: 20070806, end: 20070815
  2. AVELOX [Suspect]
     Dosage: 400 MG, QD
     Dates: start: 20070727, end: 20070805
  3. LINEZOLID [Suspect]
     Indication: PNEUMONIA STAPHYLOCOCCAL
     Dosage: INFUSION
     Dates: start: 20070808, end: 20070816

REACTIONS (3)
  - HEPATIC FAILURE [None]
  - HEPATITIS ACUTE [None]
  - HEPATOTOXICITY [None]
